FAERS Safety Report 20517742 (Version 7)
Quarter: 2024Q1

REPORT INFORMATION
  Report Type: Spontaneous
  Country: US (occurrence: US)
  Receive Date: 20220225
  Receipt Date: 20240212
  Transmission Date: 20240410
  Serious: Yes (Hospitalization, Other)
  Sender: FDA-Public Use
  Company Number: US-PFIZER INC-202200269594

PATIENT
  Age: 64 Year
  Sex: Male
  Weight: 77.5 kg

DRUGS (33)
  1. PROPOFOL [Suspect]
     Active Substance: PROPOFOL
     Indication: Sedation
     Dosage: 50 UG/KG/MIN
  2. PROPOFOL [Suspect]
     Active Substance: PROPOFOL
     Dosage: 45 UG/KG/MIN, INTRAVENOUS PUSH
     Route: 042
  3. PROPOFOL [Suspect]
     Active Substance: PROPOFOL
     Dosage: 35 UG/KG/MIN, DECREASED, INTRAVENOUS PUSH
     Route: 042
  4. PROPOFOL [Suspect]
     Active Substance: PROPOFOL
     Dosage: 25 UG/KG/MIN, IVP
     Route: 042
  5. PROPOFOL [Suspect]
     Active Substance: PROPOFOL
     Dosage: 40-50 UG/KG/MIN, IVP
     Route: 042
  6. PROPOFOL [Suspect]
     Active Substance: PROPOFOL
     Dosage: REDUCTION TO 40 UG/KG/MIN, IVP
     Route: 042
  7. PROPOFOL [Suspect]
     Active Substance: PROPOFOL
     Dosage: 60 UG/KG/MIN, IVP
     Route: 042
  8. PROPOFOL [Suspect]
     Active Substance: PROPOFOL
     Dosage: 50 UG/KG/MIN
  9. FENTANYL [Concomitant]
     Active Substance: FENTANYL\FENTANYL CITRATE
     Indication: Sedation
     Dosage: UNK, HIGH DOSES
  10. FENTANYL [Concomitant]
     Active Substance: FENTANYL\FENTANYL CITRATE
     Dosage: 50 UG PER HOUR
  11. FENTANYL [Concomitant]
     Active Substance: FENTANYL\FENTANYL CITRATE
     Dosage: 100 UG/H
  12. FENTANYL [Concomitant]
     Active Substance: FENTANYL\FENTANYL CITRATE
     Dosage: 50-100 UG/H, BOLUSES OF 25 UG
  13. FENTANYL [Concomitant]
     Active Substance: FENTANYL\FENTANYL CITRATE
     Dosage: 150 UG/H, UPTITRATION
  14. FENTANYL [Concomitant]
     Active Substance: FENTANYL\FENTANYL CITRATE
     Dosage: 200 UG/H, DOSE INCREASED
  15. FENTANYL [Concomitant]
     Active Substance: FENTANYL\FENTANYL CITRATE
     Dosage: 150 UG/H, REMAINED FIXED
  16. CISATRACURIUM [Concomitant]
     Active Substance: CISATRACURIUM
     Indication: Sedation
     Dosage: UNK, TRIALED OFF CIS UPON ARRIVAL TO THE ICU
  17. MIDAZOLAM [Concomitant]
     Active Substance: MIDAZOLAM
     Indication: Sedation
     Dosage: UNK, AS NEEDED, BOLUSES
  18. MIDAZOLAM [Concomitant]
     Active Substance: MIDAZOLAM
     Dosage: 8-10 MG/H UPTITRATED
  19. MIDAZOLAM [Concomitant]
     Active Substance: MIDAZOLAM
     Dosage: 10 MG/H
  20. MIDAZOLAM [Concomitant]
     Active Substance: MIDAZOLAM
     Dosage: 0.5 MG/H
  21. MIDAZOLAM [Concomitant]
     Active Substance: MIDAZOLAM
     Dosage: 0.5-1 MG/H, IVP
     Route: 042
  22. MIDAZOLAM [Concomitant]
     Active Substance: MIDAZOLAM
     Dosage: 2 MG/H
  23. MIDAZOLAM [Concomitant]
     Active Substance: MIDAZOLAM
     Dosage: UNK, INFUSION REINITIATED
  24. DEXMEDETOMIDINE [Concomitant]
     Active Substance: DEXMEDETOMIDINE
     Indication: Sedation
     Dosage: UNK
  25. DEXMEDETOMIDINE [Concomitant]
     Active Substance: DEXMEDETOMIDINE
     Dosage: 0.8 UG/KG/H, 8 HOURS
  26. DEXMEDETOMIDINE [Concomitant]
     Active Substance: DEXMEDETOMIDINE
     Dosage: 1.2 UG/KG/H,REINTRODUCED
  27. DEXMEDETOMIDINE [Concomitant]
     Active Substance: DEXMEDETOMIDINE
     Dosage: 0.6 UG/KG/H
  28. MELATONIN [Concomitant]
     Active Substance: MELATONIN
     Indication: Sedation
     Dosage: UNK
  29. QUETIAPINE [Concomitant]
     Active Substance: QUETIAPINE
     Indication: Sedation
     Dosage: 25 MG AT BEDTIME
  30. QUETIAPINE [Concomitant]
     Active Substance: QUETIAPINE
     Dosage: INCREASED TO 25 MG IN THE MORNING AND 50 MG AT NIGHT.
  31. AMLODIPINE [Concomitant]
     Active Substance: AMLODIPINE BESYLATE
     Indication: Hypertension
     Dosage: 10 MG
  32. VALPROIC ACID [Concomitant]
     Active Substance: VALPROIC ACID
     Dosage: 250 MG, 4X/DAY (EVERY 6 HOURS)
  33. VALPROIC ACID [Concomitant]
     Active Substance: VALPROIC ACID
     Dosage: 500 MG, 4X/DAY (EVERY 6 HOURS)

REACTIONS (7)
  - Drug dependence [Recovered/Resolved]
  - Drug withdrawal syndrome [Recovered/Resolved]
  - Paradoxical drug reaction [Recovered/Resolved]
  - Tachypnoea [Recovered/Resolved]
  - Tachycardia [Recovered/Resolved]
  - Hypertension [Recovered/Resolved]
  - Mechanical ventilation complication [Recovered/Resolved]
